FAERS Safety Report 7724898-4 (Version None)
Quarter: 2011Q3

REPORT INFORMATION
  Report Type: 
  Country: None (occurrence: None)
  Receive Date: 20110901
  Receipt Date: 20110825
  Transmission Date: 20111222
  Serious: Yes (Life-Threatening, Hospitalization)
  Sender: FDA-Public Use
  Company Number: JP-AMGEN-JPNCT2011038234

PATIENT
  Age: 55 Year
  Sex: Male
  Weight: 74 kg

DRUGS (5)
  1. LEUCOVORIN CALCIUM [Suspect]
     Indication: COLORECTAL CANCER
     Route: 041
     Dates: start: 20110107, end: 20110617
  2. EFUDEX [Suspect]
     Indication: COLORECTAL CANCER
     Route: 040
     Dates: start: 20110107, end: 20110617
  3. EFUDEX [Suspect]
     Route: 041
     Dates: start: 20110107, end: 20110617
  4. OXALIPLATIN [Suspect]
     Indication: COLORECTAL CANCER
     Route: 041
     Dates: start: 20110107, end: 20110617
  5. PANITUMUMAB [Suspect]
     Indication: COLORECTAL CANCER
     Dosage: 460 MG, Q2WK
     Route: 041
     Dates: start: 20110204, end: 20110617

REACTIONS (1)
  - INTERSTITIAL LUNG DISEASE [None]
